FAERS Safety Report 16689986 (Version 1)
Quarter: 2019Q3

REPORT INFORMATION
  Report Type: Spontaneous
  Country: JP (occurrence: JP)
  Receive Date: 20190809
  Receipt Date: 20190809
  Transmission Date: 20191004
  Serious: Yes (Hospitalization)
  Sender: FDA-Public Use
  Company Number: JP-ANIPHARMA-2019-JP-000165

PATIENT
  Sex: 0

DRUGS (1)
  1. CANDESARTAN CILEXETIL. [Suspect]
     Active Substance: CANDESARTAN CILEXETIL
     Indication: HYPERTENSION
     Dosage: 4 MG BID
     Route: 048

REACTIONS (3)
  - Product use issue [Unknown]
  - Creatinine renal clearance decreased [Unknown]
  - Hospitalisation [Unknown]
